FAERS Safety Report 23440297 (Version 1)
Quarter: 2024Q1

REPORT INFORMATION
  Report Type: Report from Study
  Country: GR (occurrence: GR)
  Receive Date: 20240124
  Receipt Date: 20240124
  Transmission Date: 20240410
  Serious: Yes (Hospitalization, Other)
  Sender: FDA-Public Use
  Company Number: GR-ABBVIE-5599093

PATIENT
  Age: 86 Year
  Sex: Female

DRUGS (15)
  1. VENETOCLAX [Suspect]
     Active Substance: VENETOCLAX
     Indication: Chronic lymphocytic leukaemia
     Route: 048
     Dates: start: 20230216, end: 20230609
  2. SITAGLIPTIN [Concomitant]
     Active Substance: SITAGLIPTIN
     Indication: Diabetes mellitus
     Dates: start: 201411
  3. HYDROCHLOROTHIAZIDE\VALSARTAN [Concomitant]
     Active Substance: HYDROCHLOROTHIAZIDE\VALSARTAN
     Indication: Hypertension
     Dosage: UNIT DOSE: 160+12,5 MG
  4. MEROPENEM [Concomitant]
     Active Substance: MEROPENEM
     Indication: Campylobacter test positive
     Dosage: TIME INTERVAL: 0.33333333 DAYS
     Dates: start: 20230610, end: 20230720
  5. ASPIRIN [Concomitant]
     Active Substance: ASPIRIN
     Indication: Antiplatelet therapy
     Dates: start: 201412
  6. VALDOXAN [Concomitant]
     Active Substance: AGOMELATINE
     Indication: Depression
     Dates: start: 202202
  7. ATORVASTATIN [Concomitant]
     Active Substance: ATORVASTATIN
     Indication: Dyslipidaemia
     Dates: start: 201806, end: 202209
  8. ENTECAVIR [Concomitant]
     Active Substance: ENTECAVIR
     Indication: Antiviral prophylaxis
     Dosage: UNIT DOSE: 0.5 MILLIGRAM
     Dates: start: 202010
  9. FLUCONAZOLE F [Concomitant]
     Indication: Antifungal prophylaxis
     Dates: start: 202011
  10. VITAMIN D3 [Concomitant]
     Active Substance: CHOLECALCIFEROL
     Indication: Product used for unknown indication
     Dates: start: 202001, end: 2022
  11. FLOST [Concomitant]
     Indication: Antiviral prophylaxis
     Dates: start: 202011
  12. ALLOPURINOL [Concomitant]
     Active Substance: ALLOPURINOL
     Indication: Hyperuricaemia
     Dates: start: 202210
  13. OMEPRAZOLE [Concomitant]
     Active Substance: OMEPRAZOLE
     Indication: Gastrointestinal disorder prophylaxis
     Dates: start: 202011
  14. BETAHISTINE [Concomitant]
     Active Substance: BETAHISTINE
     Indication: Vertigo
     Dosage: TIME INTERVAL: AS NECESSARY
     Dates: start: 20221124
  15. NEBIVOLOL [Concomitant]
     Active Substance: NEBIVOLOL
     Indication: Hypertension

REACTIONS (4)
  - Febrile neutropenia [Recovered/Resolved]
  - Diarrhoea [Recovered/Resolved]
  - Abdominal pain [Unknown]
  - Campylobacter test positive [Unknown]

NARRATIVE: CASE EVENT DATE: 20230610
